FAERS Safety Report 15543179 (Version 2)
Quarter: 2018Q4

REPORT INFORMATION
  Report Type: Spontaneous
  Country: BR (occurrence: BR)
  Receive Date: 20181023
  Receipt Date: 20181029
  Transmission Date: 20190205
  Serious: Yes (Other)
  Sender: FDA-Public Use
  Company Number: BR-PFIZER INC-2018428087

PATIENT
  Age: 43 Year
  Sex: Male

DRUGS (2)
  1. CRIZOTINIB [Suspect]
     Active Substance: CRIZOTINIB
     Indication: LUNG NEOPLASM MALIGNANT
     Dosage: 250 MG, 2X/DAY
  2. XARELTO [Interacting]
     Active Substance: RIVAROXABAN
     Dosage: UNK

REACTIONS (5)
  - Neoplasm progression [Unknown]
  - Pneumonia [Unknown]
  - Thrombocytopenia [Unknown]
  - Haemolytic uraemic syndrome [Unknown]
  - Drug interaction [Unknown]

NARRATIVE: CASE EVENT DATE: 20180923
